FAERS Safety Report 20418836 (Version 2)
Quarter: 2022Q1

REPORT INFORMATION
  Report Type: Spontaneous
  Country: US (occurrence: US)
  Receive Date: 20220202
  Receipt Date: 20220322
  Transmission Date: 20220423
  Serious: Yes (Other)
  Sender: FDA-Public Use
  Company Number: US-JNJFOC-20220146770

PATIENT
  Age: 66 Year
  Sex: Female

DRUGS (9)
  1. ELMIRON [Suspect]
     Active Substance: PENTOSAN POLYSULFATE SODIUM
     Indication: Cystitis interstitial
     Route: 048
     Dates: start: 1999, end: 2002
  2. ELMIRON [Suspect]
     Active Substance: PENTOSAN POLYSULFATE SODIUM
     Route: 048
     Dates: start: 2002, end: 2015
  3. ELMIRON [Suspect]
     Active Substance: PENTOSAN POLYSULFATE SODIUM
     Route: 048
     Dates: start: 2015, end: 2017
  4. ELMIRON [Suspect]
     Active Substance: PENTOSAN POLYSULFATE SODIUM
     Route: 048
     Dates: start: 2017, end: 2020
  5. ESTRADIOL [Concomitant]
     Active Substance: ESTRADIOL
     Indication: Hormone replacement therapy
     Dates: start: 1989
  6. PREGABALIN [Concomitant]
     Active Substance: PREGABALIN
     Indication: Pudendal canal syndrome
     Dates: start: 2013
  7. DULOXETINE [Concomitant]
     Active Substance: DULOXETINE
     Indication: Pudendal canal syndrome
     Dates: start: 2013
  8. ACYCLOVIR [Concomitant]
     Active Substance: ACYCLOVIR
     Indication: Herpes simplex
     Dates: start: 2004
  9. LAMOTRIGINE [Concomitant]
     Active Substance: LAMOTRIGINE
     Indication: Depression
     Dates: start: 2021

REACTIONS (2)
  - Maculopathy [Not Recovered/Not Resolved]
  - Retinal pigmentation [Unknown]

NARRATIVE: CASE EVENT DATE: 20210202
